FAERS Safety Report 6061755-6 (Version None)
Quarter: 2009Q1

REPORT INFORMATION
  Report Type: 
  Country: None (occurrence: None)
  Receive Date: 20090202
  Receipt Date: 20081124
  Transmission Date: 20090719
  Serious: Yes (Hospitalization)
  Sender: FDA-Public Use
  Company Number: GB-B.I. PHARMACEUTICALS,INC./RIDGEFIELD-2008-UK-01792UK

PATIENT
  Sex: Female

DRUGS (3)
  1. VIRAMUNE [Suspect]
     Indication: HIV INFECTION
     Dosage: 200MG
     Route: 048
  2. TRUVADA [Concomitant]
  3. ABACAVIR SULFATE/LAMIVUDINE [Concomitant]

REACTIONS (4)
  - ABDOMINAL PAIN UPPER [None]
  - CD4 LYMPHOCYTES INCREASED [None]
  - HEPATIC ENZYME INCREASED [None]
  - IMMUNE RECONSTITUTION SYNDROME [None]
